FAERS Safety Report 5574270-0 (Version None)
Quarter: 2007Q4

REPORT INFORMATION
  Report Type: 
  Country: None (occurrence: None)
  Receive Date: 20071221
  Receipt Date: 20071221
  Transmission Date: 20080405
  Serious: Yes (Other)
  Sender: FDA-Public Use
  Company Number: None

PATIENT
  Age: 35 Year
  Sex: Female
  Weight: 75.7507 kg

DRUGS (2)
  1. LEXAPRO [Suspect]
     Indication: BEREAVEMENT REACTION
     Dosage: 10MG ONCE PO QD PO
     Route: 048
     Dates: start: 20071214, end: 20071217
  2. LEXAPRO [Suspect]
     Indication: DEPRESSION
     Dosage: 10MG ONCE PO QD PO
     Route: 048
     Dates: start: 20071214, end: 20071217

REACTIONS (2)
  - NAUSEA [None]
  - VOMITING [None]
